FAERS Safety Report 9300166 (Version 1)
Quarter: 2012Q4

REPORT INFORMATION
  Report Type: Spontaneous
  Country: GB (occurrence: None)
  Receive Date: 20121109
  Receipt Date: 20121109
  Transmission Date: 20130627
  Serious: Yes (Hospitalization)
  Sender: FDA-Public Use
  Company Number: 2012S1000412

PATIENT
  Age: 69 Year
  Sex: Male
  Weight: 102 kg

DRUGS (6)
  1. CUBICIN (DAPTOMYCIN) [Suspect]
     Indication: OSTEOMYELITIS
     Route: 042
     Dates: start: 20110911, end: 20110923
  2. CIPROFLOXACIN [Concomitant]
  3. AMLODIPINE [Concomitant]
  4. FUROSEMIDE [Concomitant]
  5. ASPIRIN [Concomitant]
  6. PANTOPRAZOLE [Concomitant]

REACTIONS (1)
  - Myositis [None]
